FAERS Safety Report 13514879 (Version 1)
Quarter: 2017Q2

REPORT INFORMATION
  Report Type: Report from Study
  Country: IN (occurrence: IN)
  Receive Date: 20170504
  Receipt Date: 20170504
  Transmission Date: 20170830
  Serious: Yes (Death)
  Sender: FDA-Public Use
  Company Number: IN-INCYTE CORPORATION-2017IN003425

PATIENT
  Age: 43 Year
  Sex: Male
  Weight: 60 kg

DRUGS (1)
  1. JAKAVI [Suspect]
     Active Substance: RUXOLITINIB
     Indication: PRIMARY MYELOFIBROSIS
     Dosage: 5 MG, BID
     Route: 048
     Dates: start: 20170325

REACTIONS (4)
  - Anaemia [Fatal]
  - Septic shock [Fatal]
  - Sepsis [Fatal]
  - Hyperthermia [Fatal]

NARRATIVE: CASE EVENT DATE: 201704
